FAERS Safety Report 6046438-0 (Version None)
Quarter: 2009Q1

REPORT INFORMATION
  Report Type: 
  Country: None (occurrence: None)
  Receive Date: 20090122
  Receipt Date: 20090119
  Transmission Date: 20090719
  Serious: Yes (Hospitalization)
  Sender: FDA-Public Use
  Company Number: FR-WYE-G02708508

PATIENT
  Sex: Male
  Weight: 100 kg

DRUGS (3)
  1. TYGACIL [Suspect]
     Indication: DERMO-HYPODERMITIS
     Dosage: 100 MG TOTAL DAILY
     Route: 042
     Dates: start: 20081022, end: 20081102
  2. MOPRAL [Concomitant]
     Route: 048
  3. SKENAN [Concomitant]
     Dosage: 100 MG TOTAL DAILY
     Route: 048

REACTIONS (2)
  - DRUG ERUPTION [None]
  - RASH MACULO-PAPULAR [None]
